FAERS Safety Report 9396077 (Version 2)
Quarter: 2013Q3

REPORT INFORMATION
  Report Type: Spontaneous
  Country: FR (occurrence: FR)
  Receive Date: 20130711
  Receipt Date: 20130719
  Transmission Date: 20140515
  Serious: No
  Sender: FDA-Public Use
  Company Number: FR-JNJFOC-20130702662

PATIENT
  Age: 51 Year
  Sex: Male
  Weight: 92 kg

DRUGS (1)
  1. DUROGESIC [Suspect]
     Indication: PRODUCT USED FOR UNKNOWN INDICATION
     Route: 062

REACTIONS (3)
  - Product adhesion issue [Unknown]
  - Wrong technique in drug usage process [Unknown]
  - Hyperhidrosis [Unknown]
